FAERS Safety Report 24892123 (Version 1)
Quarter: 2025Q1

REPORT INFORMATION
  Report Type: Spontaneous
  Country: US (occurrence: US)
  Receive Date: 20250128
  Receipt Date: 20250128
  Transmission Date: 20250408
  Serious: Yes (Hospitalization, Other)
  Sender: WOCKHARDT LIMITED
  Company Number: US-WOCKHARDT LIMITED-2025WLD000008

PATIENT
  Age: 26 Year
  Sex: Female

DRUGS (2)
  1. CEFTRIAXONE [Suspect]
     Active Substance: CEFTRIAXONE
     Indication: Endocarditis
     Route: 042
  2. APIXABAN [Concomitant]
     Active Substance: APIXABAN
     Indication: Anticoagulant therapy
     Route: 065

REACTIONS (5)
  - Splenic infarction [Recovering/Resolving]
  - Pulmonary embolism [Recovering/Resolving]
  - Thrombophlebitis septic [Recovering/Resolving]
  - Pancreatitis acute [Recovering/Resolving]
  - Product use in unapproved indication [Recovering/Resolving]
